FAERS Safety Report 16621558 (Version 1)
Quarter: 2019Q3

REPORT INFORMATION
  Report Type: Spontaneous
  Country: US (occurrence: US)
  Receive Date: 20190723
  Receipt Date: 20190723
  Transmission Date: 20191004
  Serious: No
  Sender: FDA-Public Use
  Company Number: US-AMGEN INC.-USASP2019115154

PATIENT
  Age: 44 Year
  Sex: Female

DRUGS (5)
  1. TOPAMAX [Concomitant]
     Active Substance: TOPIRAMATE
     Indication: MIGRAINE
     Dosage: UNK
  2. PHENERGAN [Concomitant]
     Active Substance: PROMETHAZINE HYDROCHLORIDE
     Indication: MIGRAINE
     Dosage: UNK
  3. DICLOFENAC [Concomitant]
     Active Substance: DICLOFENAC
     Indication: MIGRAINE
     Dosage: UNK
  4. AIMOVIG [Suspect]
     Active Substance: ERENUMAB-AOOE
     Indication: MIGRAINE
     Dosage: 70 MILLIGRAM, QMO
     Route: 065
     Dates: start: 201905, end: 2019
  5. AIMOVIG [Suspect]
     Active Substance: ERENUMAB-AOOE
     Dosage: 140 MILLIGRAM, QMO
     Route: 065
     Dates: start: 201907

REACTIONS (1)
  - Therapy non-responder [Unknown]

NARRATIVE: CASE EVENT DATE: 201905
